FAERS Safety Report 5634673-2 (Version None)
Quarter: 2008Q1

REPORT INFORMATION
  Report Type: 
  Country: None (occurrence: None)
  Receive Date: 20080222
  Receipt Date: 20080214
  Transmission Date: 20080703
  Serious: Yes (Life-Threatening, Other)
  Sender: FDA-Public Use
  Company Number: BE-ASTRAZENECA-2008AC00497

PATIENT
  Sex: Male

DRUGS (2)
  1. LISINOPRIL AND HYDROCHLOROTHIAZIDE [Suspect]
     Route: 064
  2. PROPRANOLOL [Concomitant]
     Route: 064

REACTIONS (6)
  - ANURIA [None]
  - HYPOTENSION [None]
  - KIDNEY ENLARGEMENT [None]
  - OLIGOHYDRAMNIOS [None]
  - POTTER'S SYNDROME [None]
  - RENAL FAILURE [None]
